FAERS Safety Report 19944476 (Version 1)
Quarter: 2021Q4

REPORT INFORMATION
  Report Type: 
  Country: US (occurrence: US)
  Receive Date: 20211011
  Receipt Date: 20211011
  Transmission Date: 20220303
  Serious: No
  Sender: FDA-Public Use
  Company Number: US-C B FLEET CO INC-202009-US-003436

PATIENT
  Sex: Female

DRUGS (3)
  1. MONISTAT 3 COMBINATION PACK [Suspect]
     Active Substance: MICONAZOLE NITRATE
     Indication: Fungal infection
     Dosage: DOSAGE UNKNOWN
     Route: 067
  2. BENADRYL [DIPHENHYDRAMINE HCL] [Concomitant]
  3. LIDOCAINE [Concomitant]
     Active Substance: LIDOCAINE

REACTIONS (2)
  - Condition aggravated [Not Recovered/Not Resolved]
  - Chemical burn of genitalia [Not Recovered/Not Resolved]
